FAERS Safety Report 9223648 (Version 1)
Quarter: 2013Q2

REPORT INFORMATION
  Report Type: Spontaneous
  Country: US (occurrence: US)
  Receive Date: 20130410
  Receipt Date: 20130410
  Transmission Date: 20140414
  Serious: Yes (Hospitalization)
  Sender: FDA-Public Use
  Company Number: US-ELI_LILLY_AND_COMPANY-US201304000860

PATIENT
  Sex: Female

DRUGS (5)
  1. FORTEO [Suspect]
     Indication: OSTEOPOROSIS
     Dosage: 20 UG, QD
     Dates: start: 201106
  2. METOPROLOL [Concomitant]
     Dosage: 50 MG, BID
  3. LISINOPRIL [Concomitant]
     Dosage: 5 MG, QD
  4. PLAQUENIL [Concomitant]
  5. PLAVIX [Concomitant]
     Dosage: 75 MG, QD

REACTIONS (2)
  - Myocardial infarction [Recovered/Resolved]
  - Off label use [Unknown]
